FAERS Safety Report 16066815 (Version 1)
Quarter: 2019Q1

REPORT INFORMATION
  Report Type: Spontaneous
  Country: US (occurrence: US)
  Receive Date: 20190212
  Receipt Date: 20190212
  Transmission Date: 20190418
  Serious: No
  Sender: FDA-Public Use
  Company Number: None

PATIENT
  Age: 70 Year
  Sex: Female
  Weight: 71.31 kg

DRUGS (2)
  1. OLANZAPINE 5MG [Suspect]
     Active Substance: OLANZAPINE
     Dosage: ?          OTHER FREQUENCY:9 HS;?
     Route: 048
     Dates: start: 20190115
  2. OLANZAPINE 10MG [Suspect]
     Active Substance: OLANZAPINE
     Dosage: ?          OTHER FREQUENCY:9 HS;?
     Route: 048
     Dates: start: 20190115

REACTIONS (1)
  - Extrapyramidal disorder [None]

NARRATIVE: CASE EVENT DATE: 20190201
